FAERS Safety Report 20697891 (Version 4)
Quarter: 2022Q2

REPORT INFORMATION
  Report Type: Spontaneous
  Country: DE (occurrence: DE)
  Receive Date: 20220412
  Receipt Date: 20220507
  Transmission Date: 20220721
  Serious: Yes (Death, Life-Threatening, Hospitalization, Other)
  Sender: FDA-Public Use
  Company Number: DE-BoehringerIngelheim-2022-BI-161248

PATIENT
  Age: 62 Year
  Sex: Male
  Weight: 79 kg

DRUGS (11)
  1. DOCETAXEL [Suspect]
     Active Substance: DOCETAXEL
     Indication: Lung adenocarcinoma
     Dosage: 75 MILLIGRAM/SQ. METER, ONCE A DAY (FORMULATION- LIQUID)
     Route: 065
     Dates: start: 20211215
  2. NINTEDANIB [Suspect]
     Active Substance: NINTEDANIB
     Indication: Lung adenocarcinoma
     Dosage: 200 MILLIGRAM, TWO TIMES A DAY (2-0-2)
     Route: 048
     Dates: start: 20211215, end: 20220323
  3. NINTEDANIB [Suspect]
     Active Substance: NINTEDANIB
     Dosage: 100 MILLIGRAM, TWO TIMES A DAY
     Route: 065
     Dates: start: 20211216, end: 20220322
  4. MORPHINE [Concomitant]
     Active Substance: MORPHINE
     Indication: Dyspnoea
     Dosage: 3 MILLIGRAM, AS NECESSARY
     Route: 065
     Dates: start: 20220323
  5. AMINO ACIDS\DEXTROSE\ELECTROLYTES NOS [Concomitant]
     Active Substance: AMINO ACIDS\DEXTROSE\ELECTROLYTES NOS
     Indication: Parenteral nutrition
     Dosage: 1000 MILLILITER, ONCE A DAY
     Route: 065
     Dates: start: 20220323
  6. ACTRAPID [Concomitant]
     Active Substance: INSULIN HUMAN
     Indication: Diabetes mellitus
     Dosage: 300 INTERNATIONAL UNIT, AS NECESSARY
     Route: 065
     Dates: start: 202102
  7. METFORMIN [Concomitant]
     Active Substance: METFORMIN HYDROCHLORIDE
     Indication: Diabetes mellitus
     Dosage: UNK UNK, TWO TIMES A DAY (0.5-0-0.5)
     Route: 065
     Dates: start: 20161008, end: 20220323
  8. ASPIRIN [Concomitant]
     Active Substance: ASPIRIN
     Indication: Coronary artery disease
     Dosage: 1000 MILLIGRAM, ONCE A DAY (0-1-0)
     Route: 065
     Dates: start: 20161008
  9. DIETARY SUPPLEMENT [Concomitant]
     Active Substance: DIETARY SUPPLEMENT
     Indication: Enteral nutrition
     Dosage: UNK UNK, AS NECESSARY
     Route: 065
     Dates: start: 202201
  10. AMLODIPINE BESYLATE [Concomitant]
     Active Substance: AMLODIPINE BESYLATE
     Indication: Hypertension
     Dosage: 5 MILLIGRAM, ONCE A DAY (1-0-0)
     Route: 065
     Dates: start: 2021
  11. PANTOPRAZOLE SODIUM [Concomitant]
     Active Substance: PANTOPRAZOLE SODIUM
     Indication: Oesophagitis
     Dosage: 40 MILLIGRAM, TWO TIMES A DAY
     Route: 065
     Dates: start: 20120323

REACTIONS (5)
  - Pneumonitis [Fatal]
  - Hyponatraemia [Fatal]
  - Oesophagitis [Fatal]
  - Anaemia [Fatal]
  - Cytopenia [Not Recovered/Not Resolved]

NARRATIVE: CASE EVENT DATE: 20120101
